FAERS Safety Report 6066259-2 (Version None)
Quarter: 2009Q1

REPORT INFORMATION
  Report Type: 
  Country: None (occurrence: None)
  Receive Date: 20090205
  Receipt Date: 20090123
  Transmission Date: 20090719
  Serious: Yes (Other)
  Sender: FDA-Public Use
  Company Number: US-ABBOTT-09P-163-0499765-00

PATIENT
  Sex: Male

DRUGS (5)
  1. ZEMPLAR [Suspect]
     Indication: HYPERPARATHYROIDISM
     Dates: start: 20081215
  2. ZEMPLAR [Suspect]
     Indication: RENAL FAILURE
  3. MORPHINE [Concomitant]
     Indication: PAIN
     Dosage: PUMP
     Dates: start: 20010101
  4. UNKNOWN BLOOD PRESSURE MEDICATION [Concomitant]
     Indication: BLOOD PRESSURE
  5. UNKNOWN EYE MEDICATION [Concomitant]
     Indication: EYE DISORDER

REACTIONS (6)
  - ARTHROPATHY [None]
  - CONFUSIONAL STATE [None]
  - INCISION SITE HAEMORRHAGE [None]
  - MUSCULOSKELETAL PAIN [None]
  - MUSCULOSKELETAL STIFFNESS [None]
  - POSTOPERATIVE WOUND INFECTION [None]
